FAERS Safety Report 5540750-7 (Version None)
Quarter: 2007Q4

REPORT INFORMATION
  Report Type: 
  Country: None (occurrence: None)
  Receive Date: 20071129
  Receipt Date: 20070816
  Transmission Date: 20080405
  Serious: Yes (Other)
  Sender: FDA-Public Use
  Company Number: US200708003588

PATIENT
  Age: 26 Year
  Sex: Female

DRUGS (7)
  1. ZYPREXA [Suspect]
     Indication: ABNORMAL BEHAVIOUR
     Dosage: 10 MG, 2/D, ORAL
     Route: 048
     Dates: start: 20050101
  2. DEPAKOTE [Concomitant]
  3. COLACE (DOCUSATE SODIUM) [Concomitant]
  4. OS-CAL (CALCIUM, ERGOCALCIFEROL) [Concomitant]
  5. INDERAL [Concomitant]
  6. ADVIL /00109201/ (IBUPROFEN) [Concomitant]
  7. DEPO-PROVERA SUSPENSION/INJ [Concomitant]

REACTIONS (2)
  - GLUCOSE TOLERANCE IMPAIRED [None]
  - WEIGHT INCREASED [None]
